FAERS Safety Report 25399707 (Version 4)
Quarter: 2025Q3

REPORT INFORMATION
  Report Type: Spontaneous
  Country: EU (occurrence: EU)
  Receive Date: 20250605
  Receipt Date: 20250724
  Transmission Date: 20251020
  Serious: Yes (Life-Threatening, Hospitalization, Other)
  Sender: ALEXION PHARMACEUTICALS
  Company Number: EU-AstraZeneca-CH-00882241A

PATIENT
  Age: 78 Year
  Sex: Male
  Weight: 86 kg

DRUGS (4)
  1. LYNPARZA [Suspect]
     Active Substance: OLAPARIB
     Dosage: 300 MILLIGRAM, BID
     Dates: start: 20241126, end: 20250417
  2. LYNPARZA [Suspect]
     Active Substance: OLAPARIB
     Dosage: 30 MILLIGRAM
     Route: 065
     Dates: start: 202411, end: 202411
  3. XTANDI [Concomitant]
     Active Substance: ENZALUTAMIDE
     Route: 065
  4. ACETAMINOPHEN [Concomitant]
     Active Substance: ACETAMINOPHEN
     Route: 065

REACTIONS (6)
  - Cardiac arrest [Recovered/Resolved]
  - Coronary artery stenosis [Recovered/Resolved]
  - Arthralgia [Recovered/Resolved]
  - Dizziness [Recovered/Resolved]
  - Bladder disorder [Unknown]
  - Dyspnoea [Unknown]

NARRATIVE: CASE EVENT DATE: 20250417
